FAERS Safety Report 4831181-3 (Version None)
Quarter: 2005Q4

REPORT INFORMATION
  Report Type: 
  Country: None (occurrence: None)
  Receive Date: 20051116
  Receipt Date: 20051116
  Transmission Date: 20060501
  Serious: Yes (Life-Threatening, Hospitalization)
  Sender: FDA-Public Use
  Company Number: None

PATIENT
  Age: 40 Year
  Sex: Female

DRUGS (9)
  1. CEFAZOLIN [Suspect]
     Dosage: ONCE  IV DRIP
     Route: 041
     Dates: start: 20050711, end: 20050711
  2. LANTUS [Concomitant]
  3. AVANDIA [Concomitant]
  4. LIPITOR [Concomitant]
  5. LEVOTHYROXINE SODIUM [Concomitant]
  6. CLONAZEPAM [Concomitant]
  7. GLIPIZIDE [Concomitant]
  8. ASPIRIN [Concomitant]
  9. TYLENOL (CAPLET) [Concomitant]

REACTIONS (11)
  - ANAPHYLACTIC REACTION [None]
  - CARDIAC ENZYMES INCREASED [None]
  - CORONARY ARTERY DISEASE [None]
  - EXTRASYSTOLES [None]
  - HYPOTENSION [None]
  - HYPOXIA [None]
  - RASH [None]
  - STRIDOR [None]
  - URTICARIA [None]
  - VENTRICULAR DYSFUNCTION [None]
  - VENTRICULAR TACHYCARDIA [None]
